FAERS Safety Report 25807994 (Version 1)
Quarter: 2025Q3

REPORT INFORMATION
  Report Type: Spontaneous
  Country: US (occurrence: US)
  Receive Date: 20250916
  Receipt Date: 20250916
  Transmission Date: 20251020
  Serious: No
  Sender: Alora Pharma
  Company Number: US-OSMOTICA PHARMACEUTICALS-2024ALO00386

PATIENT
  Age: 48 Year
  Sex: Female
  Weight: 72.562 kg

DRUGS (4)
  1. METHYLPHENIDATE HYDROCHLORIDE [Suspect]
     Active Substance: METHYLPHENIDATE HYDROCHLORIDE
     Indication: Attention deficit hyperactivity disorder
     Dosage: 36 MG, ONCE A DAY
     Route: 048
     Dates: start: 20240624, end: 20240626
  2. METHYLPHENIDATE HYDROCHLORIDE [Suspect]
     Active Substance: METHYLPHENIDATE HYDROCHLORIDE
     Dosage: 36 MG, 1X/DAY
     Route: 048
     Dates: start: 2024
  3. SPIRONOLACTONE [Concomitant]
     Active Substance: SPIRONOLACTONE
  4. NP THYROID [Concomitant]
     Active Substance: LEVOTHYROXINE\LIOTHYRONINE

REACTIONS (7)
  - Feeling abnormal [Recovered/Resolved]
  - Nausea [Recovered/Resolved]
  - Dyspepsia [Recovered/Resolved]
  - Feeling jittery [Recovered/Resolved]
  - Drug ineffective [Recovered/Resolved]
  - Initial insomnia [Recovered/Resolved]
  - Middle insomnia [Recovered/Resolved]

NARRATIVE: CASE EVENT DATE: 20240601
